FAERS Safety Report 15171417 (Version 1)
Quarter: 2018Q3

REPORT INFORMATION
  Report Type: Spontaneous
  Country: DK (occurrence: DK)
  Receive Date: 20180720
  Receipt Date: 20180720
  Transmission Date: 20181010
  Serious: Yes (Other)
  Sender: FDA-Public Use
  Company Number: DK-TEVA-2018-DK-929466

PATIENT
  Age: 75 Year
  Sex: Male

DRUGS (7)
  1. TRADOLAN [Concomitant]
     Active Substance: TRAMADOL
     Indication: PAIN
     Dates: end: 20151002
  2. MATRIFEN [Concomitant]
     Active Substance: FENTANYL
     Indication: PAIN
     Route: 062
     Dates: start: 20151012
  3. LYRICA [Concomitant]
     Active Substance: PREGABALIN
     Indication: PAIN
     Dosage: DOSIS: ?GET 05OKT2015 TIL 225 MG X 2 DAGLIGT.
     Route: 048
  4. MORPHINE [Suspect]
     Active Substance: MORPHINE
     Indication: BACK PAIN
     Dosage: 2OKT2015 ORDINERES DEPOTMORFIN 20 MG OG MORFIN 5 MG P.N. MAX X 6. 5OKT2015 ?GES DOSIS TIL 30 MG.
     Route: 048
     Dates: end: 20151013
  5. AMITRIPTYLINE [Concomitant]
     Active Substance: AMITRIPTYLINE
     Indication: PAIN
     Route: 048
     Dates: end: 20151009
  6. GABAPENTIN. [Concomitant]
     Active Substance: GABAPENTIN
     Indication: PAIN
     Route: 048
     Dates: end: 20151005
  7. OXYNORM [Concomitant]
     Active Substance: OXYCODONE HYDROCHLORIDE
     Indication: PAIN
     Dosage: 50 MILLIGRAM DAILY; STYRKE: 10 MG.
     Route: 048
     Dates: start: 20150929, end: 20160114

REACTIONS (11)
  - Mental impairment [Recovered/Resolved]
  - Drug intolerance [Unknown]
  - Loss of personal independence in daily activities [Not Recovered/Not Resolved]
  - Fall [Recovered/Resolved]
  - Confusional state [Recovered/Resolved]
  - Sluggishness [Recovered/Resolved]
  - Toxicity to various agents [Recovered/Resolved with Sequelae]
  - Hallucination [Recovered/Resolved]
  - Balance disorder [Unknown]
  - Head injury [Recovered/Resolved]
  - Lower limb fracture [Recovered/Resolved]

NARRATIVE: CASE EVENT DATE: 201510
